FAERS Safety Report 7587498-5 (Version None)
Quarter: 2011Q3

REPORT INFORMATION
  Report Type: 
  Country: None (occurrence: None)
  Receive Date: 20110704
  Receipt Date: 20110620
  Transmission Date: 20111222
  Serious: Yes (Death)
  Sender: FDA-Public Use
  Company Number: GB-RANBAXY-2011R1-45655

PATIENT
  Age: 84 Year
  Sex: Male

DRUGS (9)
  1. ALLOPURINOL [Suspect]
     Indication: GOUT
     Dosage: 100 MG, QD
     Route: 048
     Dates: start: 20110519, end: 20110606
  2. LISINOPRIL [Concomitant]
     Indication: PRODUCT USED FOR UNKNOWN INDICATION
     Route: 065
  3. FLUCONAZOLE [Concomitant]
     Indication: PRODUCT USED FOR UNKNOWN INDICATION
     Route: 065
  4. AMLODIPINE [Concomitant]
     Indication: PRODUCT USED FOR UNKNOWN INDICATION
     Dosage: UNK
     Route: 065
  5. AMOXICILLIN [Suspect]
     Indication: PRODUCT USED FOR UNKNOWN INDICATION
     Dosage: 500 MG, TID
     Route: 048
     Dates: start: 20110604, end: 20110606
  6. COLICHICINE [Concomitant]
     Indication: PRODUCT USED FOR UNKNOWN INDICATION
     Dosage: UNK
     Route: 065
  7. SIMVASTATIN [Concomitant]
     Indication: PRODUCT USED FOR UNKNOWN INDICATION
     Route: 065
  8. AMOXICILLIN AND CLAVULANATE POTASSIUM [Suspect]
     Indication: CELLULITIS
     Dosage: 625 MG, TID
     Route: 048
     Dates: start: 20110519, end: 20110526
  9. LANSOPRAZOLE [Concomitant]
     Indication: PRODUCT USED FOR UNKNOWN INDICATION
     Route: 065

REACTIONS (8)
  - RASH MACULO-PAPULAR [None]
  - PARAKERATOSIS [None]
  - ERYTHEMA [None]
  - RENAL FAILURE ACUTE [None]
  - SKIN OEDEMA [None]
  - EXTRAVASATION BLOOD [None]
  - HYPERSENSITIVITY [None]
  - DERMATITIS [None]
